FAERS Safety Report 5405594-5 (Version None)
Quarter: 2007Q3

REPORT INFORMATION
  Report Type: 
  Country: None (occurrence: None)
  Receive Date: 20070806
  Receipt Date: 20070801
  Transmission Date: 20080115
  Serious: Yes (Hospitalization)
  Sender: FDA-Public Use
  Company Number: FR-SP-2006-03223

PATIENT
  Age: 55 Year
  Sex: Male

DRUGS (4)
  1. IMMUCYST [Suspect]
     Indication: BLADDER CANCER
     Route: 043
     Dates: start: 20060829, end: 20061003
  2. IMMUCYST [Suspect]
     Route: 043
     Dates: start: 20060829, end: 20061003
  3. ATACAND [Concomitant]
  4. ALPRAZOLAM [Concomitant]

REACTIONS (4)
  - ARTHRALGIA [None]
  - ARTHRITIS [None]
  - INFLAMMATION [None]
  - PYREXIA [None]
